FAERS Safety Report 15860325 (Version 4)
Quarter: 2019Q1

REPORT INFORMATION
  Report Type: Report from Study
  Country: None (occurrence: US)
  Receive Date: 20190123
  Receipt Date: 20190215
  Transmission Date: 20190417
  Serious: Yes (Hospitalization, Other)
  Sender: FDA-Public Use
  Company Number: US-ABBVIE-19P-163-2632324-00

PATIENT
  Age: 82 Year
  Sex: Male
  Weight: 77.18 kg

DRUGS (8)
  1. VENETOCLAX. [Suspect]
     Active Substance: VENETOCLAX
     Route: 048
     Dates: start: 20190108, end: 20190108
  2. DINACICLIB [Suspect]
     Active Substance: DINACICLIB
     Indication: ACUTE MYELOID LEUKAEMIA
     Dosage: DAYS 1,4 AND 8 OF EACH 21 DAY CYCLE
     Route: 042
     Dates: start: 20190107, end: 20190107
  3. DINACICLIB [Suspect]
     Active Substance: DINACICLIB
     Dosage: DAYS 1,4 AND 8 OF EACH 21 DAY CYCLE
     Route: 042
     Dates: start: 20190130
  4. VENETOCLAX. [Suspect]
     Active Substance: VENETOCLAX
     Indication: ACUTE MYELOID LEUKAEMIA
     Route: 048
     Dates: start: 20190107, end: 20190107
  5. VENETOCLAX. [Suspect]
     Active Substance: VENETOCLAX
     Route: 048
     Dates: start: 20190109, end: 20190115
  6. VENETOCLAX. [Suspect]
     Active Substance: VENETOCLAX
     Route: 048
     Dates: start: 20190122
  7. DINACICLIB [Suspect]
     Active Substance: DINACICLIB
     Dosage: DAYS 1,4 AND 8 OF EACH 21 DAY CYCLE
     Route: 042
     Dates: start: 20190110, end: 20190110
  8. DINACICLIB [Suspect]
     Active Substance: DINACICLIB
     Dosage: DAYS 1,4 AND 8 OF EACH 21 DAY CYCLE
     Route: 042
     Dates: start: 20190114, end: 20190114

REACTIONS (1)
  - Enterococcal bacteraemia [Recovered/Resolved]

NARRATIVE: CASE EVENT DATE: 20190116
